FAERS Safety Report 9728409 (Version 1)
Quarter: 2013Q4

REPORT INFORMATION
  Report Type: Spontaneous
  Country: US (occurrence: US)
  Receive Date: 20131204
  Receipt Date: 20131204
  Transmission Date: 20140711
  Serious: Yes (Hospitalization)
  Sender: FDA-Public Use
  Company Number: US-ASTELLAS-2013US012492

PATIENT
  Age: 83 Year
  Sex: Male

DRUGS (1)
  1. LEXISCAN [Suspect]
     Indication: CARDIAC STRESS TEST
     Dosage: UNK
     Route: 042

REACTIONS (7)
  - Vomiting [Unknown]
  - Aspiration [Unknown]
  - Choking [Unknown]
  - Respiratory arrest [Recovering/Resolving]
  - Cyanosis [Recovering/Resolving]
  - Unresponsive to stimuli [Recovering/Resolving]
  - Cardiac arrest [Unknown]
